FAERS Safety Report 6854543-1 (Version None)
Quarter: 2010Q3

REPORT INFORMATION
  Report Type: 
  Country: None (occurrence: None)
  Receive Date: 20100717
  Receipt Date: 20080109
  Transmission Date: 20110219
  Serious: No
  Sender: FDA-Public Use
  Company Number: US-PFIZER INC-2008002808

PATIENT
  Sex: Female
  Weight: 63.5 kg

DRUGS (7)
  1. CHANTIX [Suspect]
     Indication: SMOKING CESSATION THERAPY
  2. LORTAB [Concomitant]
     Indication: PAIN
  3. BUPAP [Concomitant]
     Indication: MIGRAINE
  4. CLONAZEPAM [Concomitant]
     Indication: ANXIETY
  5. FLEXERIL [Concomitant]
     Indication: MUSCLE SPASMS
  6. FLEXERIL [Concomitant]
     Indication: FIBROMYALGIA
  7. LOVASTATIN [Concomitant]
     Indication: BLOOD CHOLESTEROL ABNORMAL

REACTIONS (8)
  - BRONCHITIS [None]
  - HEADACHE [None]
  - MALAISE [None]
  - MEDICATION ERROR [None]
  - NAUSEA [None]
  - PYREXIA [None]
  - SINUSITIS [None]
  - VOMITING [None]
